FAERS Safety Report 17452212 (Version 1)
Quarter: 2020Q1

REPORT INFORMATION
  Report Type: Spontaneous
  Country: BR (occurrence: BR)
  Receive Date: 20200224
  Receipt Date: 20200224
  Transmission Date: 20200409
  Serious: Yes (Other)
  Sender: FDA-Public Use
  Company Number: BR-PFIZER INC-2020078423

PATIENT
  Sex: Female

DRUGS (5)
  1. DETRUSITOL [Suspect]
     Active Substance: TOLTERODINE TARTRATE
     Indication: FLUID RETENTION
  2. APIXABAN [Concomitant]
     Active Substance: APIXABAN
     Dosage: UNK
  3. ATORVASTATIN [Concomitant]
     Active Substance: ATORVASTATIN
     Dosage: UNK
  4. FUROSEMIDE. [Concomitant]
     Active Substance: FUROSEMIDE
     Indication: PULMONARY OEDEMA
  5. DETRUSITOL [Suspect]
     Active Substance: TOLTERODINE TARTRATE
     Indication: BLADDER PROLAPSE

REACTIONS (4)
  - Product use in unapproved indication [Unknown]
  - Cardiac fibrillation [Unknown]
  - Off label use [Unknown]
  - Diabetes mellitus [Unknown]
